FAERS Safety Report 10647191 (Version 2)
Quarter: 2014Q4

REPORT INFORMATION
  Report Type: Spontaneous
  Country: US (occurrence: US)
  Receive Date: 20141211
  Receipt Date: 20141211
  Transmission Date: 20150529
  Serious: No
  Sender: FDA-Public Use
  Company Number: US-INCYTE CORPORATION-2014IN002563

PATIENT
  Sex: Male

DRUGS (12)
  1. FUROSEMIDE. [Concomitant]
     Active Substance: FUROSEMIDE
  2. CLONIDINE. [Concomitant]
     Active Substance: CLONIDINE
  3. COLCRYS [Concomitant]
     Active Substance: COLCHICINE
  4. VITAMIN D                          /00107901/ [Concomitant]
     Active Substance: ERGOCALCIFEROL
  5. FLOMAX [Concomitant]
     Active Substance: TAMSULOSIN HYDROCHLORIDE
  6. VALSARTAN. [Concomitant]
     Active Substance: VALSARTAN
  7. NITROGLYCERIN. [Concomitant]
     Active Substance: NITROGLYCERIN
  8. JAKAFI [Suspect]
     Active Substance: RUXOLITINIB
     Dosage: 5 MG, BID
     Route: 048
  9. CELEBREX [Concomitant]
     Active Substance: CELECOXIB
  10. METOPROLOL [Concomitant]
     Active Substance: METOPROLOL
  11. NOVOLOG [Concomitant]
     Active Substance: INSULIN ASPART
  12. ALLOPURINOL. [Concomitant]
     Active Substance: ALLOPURINOL

REACTIONS (1)
  - Asthenia [Not Recovered/Not Resolved]
